FAERS Safety Report 9773627 (Version 2)
Quarter: 2013Q4

REPORT INFORMATION
  Report Type: Spontaneous
  Country: US (occurrence: US)
  Receive Date: 20131219
  Receipt Date: 20131231
  Transmission Date: 20140711
  Serious: Yes (Hospitalization)
  Sender: FDA-Public Use
  Company Number: US-BAXTER-2013BAX050434

PATIENT
  Age: 20 Year
  Sex: Female
  Weight: 79.9 kg

DRUGS (26)
  1. GAMMAGARD LIQUID [Suspect]
     Indication: INFECTION PROPHYLAXIS
     Dosage: 400 MG/KG (32 GRAMS TOTAL)
     Route: 042
     Dates: start: 20131213
  2. GAMMAGARD LIQUID [Suspect]
     Indication: OFF LABEL USE
  3. GAMMAGARD LIQUID [Suspect]
     Indication: INFECTION PROPHYLAXIS
     Dosage: 400 MG/KG (32 GRAMS TOTAL)
     Route: 042
     Dates: start: 20131118, end: 20131118
  4. GAMMAGARD LIQUID [Suspect]
     Indication: OFF LABEL USE
  5. ADVAIR [Concomitant]
     Indication: PRODUCT USED FOR UNKNOWN INDICATION
     Route: 055
  6. ALBUTEROL [Concomitant]
     Indication: PRODUCT USED FOR UNKNOWN INDICATION
     Route: 055
  7. TUMS [Concomitant]
     Indication: PRODUCT USED FOR UNKNOWN INDICATION
     Dosage: 2-500 MG CHEWABLE TABLETS TWICE DAILY
     Route: 048
  8. CELCEPT [Concomitant]
     Indication: PRODUCT USED FOR UNKNOWN INDICATION
     Dosage: 2-500 MG TABLETS TWICE DAILY
     Route: 065
  9. VITAMIN D3 [Concomitant]
     Indication: PRODUCT USED FOR UNKNOWN INDICATION
     Dosage: 2-1000 UNIT TABLETS DAILY
     Route: 048
  10. COUMADIN [Concomitant]
     Indication: ANTIPHOSPHOLIPID SYNDROME
     Dosage: MONDAY THRU FRIDAY
     Route: 065
  11. COUMADIN [Concomitant]
     Dosage: SATURDAY AND SUNDAY
     Route: 065
  12. LOVENOX [Concomitant]
     Indication: PRODUCT USED FOR UNKNOWN INDICATION
  13. FLUDROCORTISONE [Concomitant]
     Indication: PRODUCT USED FOR UNKNOWN INDICATION
     Route: 065
  14. LIPITOR [Concomitant]
     Indication: PRODUCT USED FOR UNKNOWN INDICATION
     Route: 065
  15. LISINOPRIL [Concomitant]
     Indication: PRODUCT USED FOR UNKNOWN INDICATION
     Dosage: 3-10 MG TABLETS TWICE DAILY
     Route: 048
  16. PREDNISONE [Concomitant]
     Indication: PRODUCT USED FOR UNKNOWN INDICATION
     Route: 065
  17. PREDNISONE [Concomitant]
     Dosage: 15 MILLIGRAMS ONCE DAILY WHEN ILL
     Route: 065
  18. PRENATAL VITAMIN [Concomitant]
     Indication: PRODUCT USED FOR UNKNOWN INDICATION
     Route: 065
  19. PULMOZYME [Concomitant]
     Indication: PRODUCT USED FOR UNKNOWN INDICATION
     Route: 055
  20. RIBOFLAVIN [Concomitant]
     Indication: PRODUCT USED FOR UNKNOWN INDICATION
     Route: 065
  21. TOPAMAX [Concomitant]
     Indication: PRODUCT USED FOR UNKNOWN INDICATION
     Dosage: 2 CAPSULES, SPRINKLE EVERY NIGHT AT BEDTIME
     Route: 065
  22. ZOLOFT [Concomitant]
     Indication: PRODUCT USED FOR UNKNOWN INDICATION
     Route: 065
  23. DEXTROSE AND SODIUM CHLORIDE INJECTION [Concomitant]
     Indication: PREMEDICATION
     Route: 042
     Dates: start: 20131213, end: 20131213
  24. TYLENOL [Concomitant]
     Indication: PREMEDICATION
     Route: 048
     Dates: start: 20131213, end: 20131213
  25. BENADRYL [Concomitant]
     Indication: PREMEDICATION
     Dates: start: 20131213, end: 20131213
  26. ZANTAC [Concomitant]
     Indication: PREMEDICATION
     Route: 048
     Dates: start: 20131213, end: 20131213

REACTIONS (2)
  - Headache [Unknown]
  - Dehydration [Recovered/Resolved]
